FAERS Safety Report 18723844 (Version 4)
Quarter: 2021Q1

REPORT INFORMATION
  Report Type: Report from Study
  Country: CA (occurrence: CA)
  Receive Date: 20210111
  Receipt Date: 20210330
  Transmission Date: 20210419
  Serious: Yes (Hospitalization, Other)
  Sender: FDA-Public Use
  Company Number: CA-GLAXOSMITHKLINE-CA2021AMR001012

PATIENT
  Age: 69 Year
  Sex: Female

DRUGS (1)
  1. MEPOLIZUMAB [Suspect]
     Active Substance: MEPOLIZUMAB
     Indication: ASTHMA
     Dosage: 100 MG, Z (EVERY 4 WEEK)
     Route: 058
     Dates: start: 20200617

REACTIONS (9)
  - Post-traumatic stress disorder [Unknown]
  - Deep vein thrombosis [Unknown]
  - Dyspnoea [Unknown]
  - Asthma [Unknown]
  - Pulmonary embolism [Unknown]
  - Depressed mood [Unknown]
  - Dyspnoea exertional [Recovering/Resolving]
  - Sleep disorder due to a general medical condition [Unknown]
  - Wheezing [Unknown]

NARRATIVE: CASE EVENT DATE: 20210103
